FAERS Safety Report 8990670 (Version 1)
Quarter: 2012Q4

REPORT INFORMATION
  Report Type: Spontaneous
  Country: US (occurrence: None)
  Receive Date: 20121226
  Receipt Date: 20121226
  Transmission Date: 20130627
  Serious: Yes (Other)
  Sender: FDA-Public Use
  Company Number: None

PATIENT
  Age: 71 Year
  Sex: Female
  Weight: 90.72 kg

DRUGS (2)
  1. FENTANYL [Suspect]
     Dosage: ONE Q 3 DAYS TRANSDERMAL
     Route: 062
     Dates: start: 20121025, end: 20121229
  2. FENTANYL [Suspect]
     Dosage: ONE Q 3 DAYS TRANSDERMAL
     Route: 062
     Dates: start: 20121025, end: 20121229

REACTIONS (6)
  - Drug withdrawal syndrome [None]
  - Headache [None]
  - Nausea [None]
  - Muscle spasms [None]
  - Pain [None]
  - Drug effect decreased [None]
